FAERS Safety Report 24623122 (Version 3)
Quarter: 2024Q4

REPORT INFORMATION
  Report Type: Spontaneous
  Country: CN (occurrence: CN)
  Receive Date: 20241115
  Receipt Date: 20241121
  Transmission Date: 20250114
  Serious: Yes (Death, Other)
  Sender: ROCHE
  Company Number: CN-ROCHE-10000131501

PATIENT
  Sex: Male

DRUGS (1)
  1. ENTRECTINIB [Suspect]
     Active Substance: ENTRECTINIB
     Indication: Lung neoplasm malignant
     Route: 065

REACTIONS (12)
  - Myocardial infarction [Fatal]
  - Respiratory failure [Unknown]
  - Arrhythmia [Unknown]
  - Cardiac failure [Unknown]
  - Gastrointestinal haemorrhage [Unknown]
  - Shock haemorrhagic [Unknown]
  - Cerebral haemorrhage [Unknown]
  - Cerebral infarction [Unknown]
  - Brain herniation [Unknown]
  - Multiple organ dysfunction syndrome [Unknown]
  - Infection [Unknown]
  - Toxic shock syndrome [Unknown]
